FAERS Safety Report 14252774 (Version 1)
Quarter: 2017Q4

REPORT INFORMATION
  Report Type: Other
  Country: AU (occurrence: AU)
  Receive Date: 20171206
  Receipt Date: 20171206
  Transmission Date: 20180321
  Serious: Yes (Other)
  Sender: FDA-Public Use
  Company Number: AU-ATLAS PHARMACEUTICALS, LLC-2036779

PATIENT
  Age: 17 Year
  Sex: Male
  Weight: 77 kg

DRUGS (2)
  1. CLOZAPINE. [Concomitant]
     Active Substance: CLOZAPINE
     Route: 065
  2. METFORMIN [Suspect]
     Active Substance: METFORMIN HYDROCHLORIDE
     Indication: WEIGHT INCREASED
     Route: 065

REACTIONS (3)
  - Product use in unapproved indication [Unknown]
  - Pancreatitis [Recovering/Resolving]
  - Extra dose administered [Unknown]
